FAERS Safety Report 15647186 (Version 1)
Quarter: 2018Q4

REPORT INFORMATION
  Report Type: Report from Study
  Country: US (occurrence: US)
  Receive Date: 20181122
  Receipt Date: 20181122
  Transmission Date: 20190205
  Serious: Yes (Hospitalization, Other)
  Sender: FDA-Public Use
  Company Number: US-GILEAD-2018-0375393

PATIENT
  Age: 58 Year
  Sex: Female

DRUGS (18)
  1. TRIAMCINOLON [TRIAMCINOLONE] [Concomitant]
  2. IRON [Concomitant]
     Active Substance: IRON
  3. OMEPRAZOLE. [Concomitant]
     Active Substance: OMEPRAZOLE
  4. REVATIO [Concomitant]
     Active Substance: SILDENAFIL CITRATE
  5. CALCIUM [Concomitant]
     Active Substance: CALCIUM
  6. HYDROXYCHLOR [Concomitant]
     Active Substance: HYDROXYCHLOROQUINE
  7. METRONIDAZOL [METRONIDAZOLE] [Concomitant]
  8. CRANBERRY [VACCINIUM MACROCARPON] [Concomitant]
  9. FUROSEMIDE. [Concomitant]
     Active Substance: FUROSEMIDE
  10. SYNTHROID [Concomitant]
     Active Substance: LEVOTHYROXINE SODIUM
  11. VENTAVIS [Concomitant]
     Active Substance: ILOPROST
  12. TYLENOL PM [Concomitant]
     Active Substance: ACETAMINOPHEN\DIPHENHYDRAMINE
  13. AMBRISENTAN [Suspect]
     Active Substance: AMBRISENTAN
     Indication: PULMONARY HYPERTENSION
     Dosage: 10 MG, QD
     Route: 065
     Dates: start: 20121228
  14. VITAMIN C [Concomitant]
     Active Substance: ASCORBIC ACID
  15. VITAMIN D [Concomitant]
     Active Substance: CHOLECALCIFEROL
  16. POTASSIUM [Concomitant]
     Active Substance: POTASSIUM
  17. ASPIRIN [ACETYLSALICYLIC ACID] [Concomitant]
     Active Substance: ASPIRIN
  18. WARFARIN [Concomitant]
     Active Substance: WARFARIN

REACTIONS (1)
  - Pneumonia [Not Recovered/Not Resolved]

NARRATIVE: CASE EVENT DATE: 201811
